FAERS Safety Report 12582602 (Version 1)
Quarter: 2016Q3

REPORT INFORMATION
  Report Type: Report from Study
  Country: IL (occurrence: IL)
  Receive Date: 20160722
  Receipt Date: 20160722
  Transmission Date: 20161109
  Serious: Yes (Other)
  Sender: FDA-Public Use
  Company Number: PHHY2015IL012718

PATIENT
  Age: 53 Year
  Sex: Female

DRUGS (3)
  1. GILENYA [Suspect]
     Active Substance: FINGOLIMOD HYDROCHLORIDE
     Indication: MULTIPLE SCLEROSIS
     Dosage: 0.5 MG, QD
     Route: 048
     Dates: start: 20150126, end: 20160719
  2. BOTOX [Concomitant]
     Active Substance: ONABOTULINUMTOXINA
     Indication: URINARY INCONTINENCE
     Route: 065
  3. BOTOX [Concomitant]
     Active Substance: ONABOTULINUMTOXINA
     Indication: URINARY RETENTION

REACTIONS (6)
  - Central nervous system lesion [Not Recovered/Not Resolved]
  - Paraesthesia [Recovered/Resolved]
  - Gait disturbance [Not Recovered/Not Resolved]
  - Dysstasia [Not Recovered/Not Resolved]
  - Hypoaesthesia [Not Recovered/Not Resolved]
  - Tremor [Not Recovered/Not Resolved]

NARRATIVE: CASE EVENT DATE: 20150129
